FAERS Safety Report 14554412 (Version 1)
Quarter: 2018Q1

REPORT INFORMATION
  Report Type: Spontaneous
  Country: US (occurrence: US)
  Receive Date: 20180220
  Receipt Date: 20180220
  Transmission Date: 20180509
  Serious: No
  Sender: FDA-Public Use
  Company Number: US-TEVA-2018-US-852132

PATIENT
  Sex: Female

DRUGS (2)
  1. BUPROPION. [Suspect]
     Active Substance: BUPROPION
     Dosage: DOSE STRENGTH: 500
     Route: 065
  2. BUPROPION. [Suspect]
     Active Substance: BUPROPION
     Route: 065

REACTIONS (1)
  - Drug effect incomplete [Unknown]
